FAERS Safety Report 4505034-4 (Version None)
Quarter: 2005Q1

REPORT INFORMATION
  Report Type: 
  Country: None (occurrence: None)
  Receive Date: 20041015
  Receipt Date: 20030924
  Transmission Date: 20050727
  Serious: Yes (Disabling)
  Sender: FDA-Public Use
  Company Number: 2003040738

PATIENT
  Sex: Female

DRUGS (2)
  1. NEURONTIN [Suspect]
     Indication: ILL-DEFINED DISORDER
  2. ARIPIPRAZOLE (ARIPIPRAZOLE) [Suspect]
     Indication: ILL-DEFINED DISORDER

REACTIONS (2)
  - DEPRESSION [None]
  - MANIA [None]
